FAERS Safety Report 17525305 (Version 1)
Quarter: 2020Q1

REPORT INFORMATION
  Report Type: Spontaneous
  Country: US (occurrence: US)
  Receive Date: 20200311
  Receipt Date: 20200311
  Transmission Date: 20200409
  Serious: Yes (Hospitalization)
  Sender: FDA-Public Use
  Company Number: None

PATIENT
  Age: 63 Year
  Sex: Female

DRUGS (16)
  1. ACTAMIN [Concomitant]
  2. MULTIVITAMINES [Concomitant]
     Active Substance: VITAMINS
  3. DOK CAP 100 MG [Concomitant]
  4. HYDROCO/APAP [Concomitant]
     Active Substance: ACETAMINOPHEN\HYDROCODONE
  5. PRILOSEC [Concomitant]
     Active Substance: OMEPRAZOLE MAGNESIUM
  6. VITAMIN C [Concomitant]
     Active Substance: ASCORBIC ACID
  7. AUR SALINE [Concomitant]
  8. SUPER B- COMP [Concomitant]
  9. CARVEDILOL. [Concomitant]
     Active Substance: CARVEDILOL
  10. LETROZOLE. [Concomitant]
     Active Substance: LETROZOLE
  11. IBRANCE [Suspect]
     Active Substance: PALBOCICLIB
     Indication: BREAST CANCER
     Route: 048
  12. BENZONATATE. [Concomitant]
     Active Substance: BENZONATATE
  13. CYCLOBENZAPR [Concomitant]
     Active Substance: CYCLOBENZAPRINE
  14. CEFADROXIL. [Concomitant]
     Active Substance: CEFADROXIL
  15. GLUCOS/CHOND TAB [Concomitant]
  16. VIT D [Concomitant]
     Active Substance: VITAMIN D NOS

REACTIONS (1)
  - Therapy cessation [None]

NARRATIVE: CASE EVENT DATE: 20200304
